FAERS Safety Report 25380099 (Version 1)
Quarter: 2025Q2

REPORT INFORMATION
  Report Type: Spontaneous
  Country: CA (occurrence: CA)
  Receive Date: 20250530
  Receipt Date: 20250530
  Transmission Date: 20250717
  Serious: Yes (Hospitalization, Other)
  Sender: SANDOZ
  Company Number: CA-002147023-NVSC2022CA221451

PATIENT
  Age: 35 Year
  Sex: Female

DRUGS (20)
  1. DIMENHYDRINATE [Suspect]
     Active Substance: DIMENHYDRINATE
     Indication: Hyperemesis gravidarum
     Dosage: 50 MG, Q4H, EVERY 4 HOURS, REGULARLY
     Route: 042
  2. DIMENHYDRINATE [Suspect]
     Active Substance: DIMENHYDRINATE
     Indication: Morning sickness
     Route: 065
  3. DOXYLAMINE [Suspect]
     Active Substance: DOXYLAMINE
     Dosage: 10 MG, BID (EACH IN THE MORNING AND AFTERNOON)
     Route: 048
  4. DOXYLAMINE [Suspect]
     Active Substance: DOXYLAMINE
     Dosage: 20 MG OF EACH IN THE EVENING
     Route: 048
  5. DOXYLAMINE [Suspect]
     Active Substance: DOXYLAMINE
     Indication: Morning sickness
     Route: 065
  6. DOXYLAMINE SUCCINATE\PYRIDOXINE HYDROCHLORIDE [Suspect]
     Active Substance: DOXYLAMINE SUCCINATE\PYRIDOXINE HYDROCHLORIDE
     Indication: Hyperemesis gravidarum
     Dosage: 40 MG, QD, 10 MG OF EACH IN THE MORNING AND AFTERNOON, 20 MG OF EACH IN THE EVENING
     Route: 048
  7. FAMOTIDINE [Suspect]
     Active Substance: FAMOTIDINE
     Indication: Morning sickness
     Dosage: 20 MG, QD
     Route: 042
  8. FAMOTIDINE [Suspect]
     Active Substance: FAMOTIDINE
     Indication: Hyperemesis gravidarum
  9. ONDANSETRON [Suspect]
     Active Substance: ONDANSETRON
     Indication: Morning sickness
     Dosage: 8 MG, EVERY 8 HOURS AS NEEDED, AS NECESSARY
     Route: 042
  10. ONDANSETRON [Suspect]
     Active Substance: ONDANSETRON
     Indication: Hyperemesis gravidarum
  11. PROCHLORPERAZINE [Suspect]
     Active Substance: PROCHLORPERAZINE
     Indication: Hyperemesis gravidarum
     Dosage: 10 MG, Q6H
     Route: 048
  12. PROCHLORPERAZINE [Suspect]
     Active Substance: PROCHLORPERAZINE
     Indication: Morning sickness
     Dosage: 5 MG, Q6H, ORALLY EVERY 6 HOURS WAS ADDED, AS NECESSARY
     Route: 048
  13. PYRIDOXINE [Suspect]
     Active Substance: PYRIDOXINE
     Dosage: 10 MG, BID (EACH IN THE MORNING AND AFTERNOON)
     Route: 048
  14. PYRIDOXINE [Suspect]
     Active Substance: PYRIDOXINE
     Dosage: 20 MG OF EACH IN THE EVENING
     Route: 048
  15. PYRIDOXINE [Suspect]
     Active Substance: PYRIDOXINE
     Route: 065
  16. PYRIDOXINE [Suspect]
     Active Substance: PYRIDOXINE
     Indication: Morning sickness
     Route: 065
  17. SUMATRIPTAN [Suspect]
     Active Substance: SUMATRIPTAN
     Route: 048
  18. SUMATRIPTAN [Suspect]
     Active Substance: SUMATRIPTAN
     Route: 048
  19. SUMATRIPTAN [Suspect]
     Active Substance: SUMATRIPTAN
     Route: 048
  20. SUMATRIPTAN [Suspect]
     Active Substance: SUMATRIPTAN
     Indication: Migraine
     Route: 065

REACTIONS (3)
  - Serotonin syndrome [Recovered/Resolved]
  - Off label use [Unknown]
  - Drug ineffective [Unknown]
